FAERS Safety Report 5450359-1 (Version None)
Quarter: 2007Q3

REPORT INFORMATION
  Report Type: 
  Country: None (occurrence: None)
  Receive Date: 20070808
  Receipt Date: 20070503
  Transmission Date: 20080115
  Serious: Yes (Other)
  Sender: FDA-Public Use
  Company Number: 07C144 & 07C145

PATIENT
  Sex: Female

DRUGS (7)
  1. BETAMETHASONE DIPROPIONATE [Suspect]
     Dosage: TOPICAL
     Route: 061
     Dates: start: 20070426
  2. BETAMETHASONE DIPROPIONATE [Suspect]
     Dosage: TOPICAL
     Route: 061
     Dates: start: 20070426
  3. ELIDEL [Concomitant]
  4. ELOCON [Concomitant]
  5. DESONIDE CREAM 0.5% [Concomitant]
  6. SBR-LIPOCREAM [Concomitant]
  7. ALPATREX 0.5% [Concomitant]

REACTIONS (1)
  - DRUG INEFFECTIVE [None]
